FAERS Safety Report 14772806 (Version 8)
Quarter: 2020Q2

REPORT INFORMATION
  Report Type: Spontaneous
  Country: US (occurrence: US)
  Receive Date: 20180418
  Receipt Date: 20200603
  Transmission Date: 20200713
  Serious: No
  Sender: FDA-Public Use
  Company Number: US-PFIZER INC-2018152984

PATIENT
  Age: 83 Year
  Sex: Female
  Weight: 72.57 kg

DRUGS (3)
  1. LETROZOLE. [Concomitant]
     Active Substance: LETROZOLE
     Indication: BREAST CANCER STAGE IV
     Dosage: UNK
     Dates: start: 201707
  2. IBRANCE [Suspect]
     Active Substance: PALBOCICLIB
     Dosage: 100 MG
  3. IBRANCE [Suspect]
     Active Substance: PALBOCICLIB
     Indication: BREAST CANCER STAGE IV
     Dosage: 125 MG, CYCLIC (21 DAYS ON AND 7 DAYS OFF)
     Route: 048
     Dates: start: 201707

REACTIONS (14)
  - Weight increased [Unknown]
  - Blister [Recovering/Resolving]
  - Peripheral swelling [Unknown]
  - Stomatitis [Unknown]
  - Skin exfoliation [Unknown]
  - Anxiety [Unknown]
  - Urinary tract infection [Unknown]
  - Product dose omission [Not Recovered/Not Resolved]
  - Musculoskeletal stiffness [Unknown]
  - Burning sensation [Unknown]
  - Memory impairment [Not Recovered/Not Resolved]
  - Hair disorder [Unknown]
  - Oral discomfort [Unknown]
  - Confusional state [Unknown]

NARRATIVE: CASE EVENT DATE: 2018
